FAERS Safety Report 22161679 (Version 1)
Quarter: 2023Q1

REPORT INFORMATION
  Report Type: Spontaneous
  Country: CN (occurrence: CN)
  Receive Date: 20230331
  Receipt Date: 20230331
  Transmission Date: 20230417
  Serious: Yes (Other)
  Sender: FDA-Public Use
  Company Number: CN-009507513-2303CHN009853

PATIENT
  Age: 35 Year
  Sex: Male
  Weight: 45 kg

DRUGS (1)
  1. CILASTATIN SODIUM\IMIPENEM [Suspect]
     Active Substance: CILASTATIN SODIUM\IMIPENEM
     Indication: Pneumonia
     Dosage: 0.5 G, EVERY 8 HOURS
     Route: 041
     Dates: start: 20230311, end: 20230313

REACTIONS (3)
  - Disorganised speech [Recovering/Resolving]
  - Depressed level of consciousness [Recovering/Resolving]
  - Mental disorder [Recovering/Resolving]

NARRATIVE: CASE EVENT DATE: 20230312
